FAERS Safety Report 5446073-9 (Version None)
Quarter: 2007Q3

REPORT INFORMATION
  Report Type: 
  Country: None (occurrence: None)
  Receive Date: 20070907
  Receipt Date: 20070906
  Transmission Date: 20080115
  Serious: Yes (Hospitalization)
  Sender: FDA-Public Use
  Company Number: US-BRISTOL-MYERS SQUIBB COMPANY-13900253

PATIENT
  Age: 49 Year
  Sex: Male
  Weight: 71 kg

DRUGS (8)
  1. PACLITAXEL [Suspect]
     Indication: LUNG NEOPLASM MALIGNANT
     Route: 042
     Dates: start: 20061227, end: 20070416
  2. CARBOPLATIN [Suspect]
     Indication: LUNG NEOPLASM MALIGNANT
     Route: 042
     Dates: start: 20061227, end: 20070416
  3. AG-013736 [Suspect]
     Indication: LUNG NEOPLASM MALIGNANT
     Route: 048
     Dates: start: 20061227, end: 20070507
  4. ASCORBIC ACID [Concomitant]
     Route: 048
     Dates: start: 20061026
  5. VITAMIN CAP [Concomitant]
     Route: 048
     Dates: start: 20061026
  6. DEPAKOTE [Concomitant]
     Indication: CONVULSION
     Route: 048
     Dates: start: 20061219
  7. FOLIC ACID [Concomitant]
     Route: 048
     Dates: start: 20061219
  8. VASOTEC [Concomitant]
     Route: 048
     Dates: start: 20070109

REACTIONS (1)
  - CEREBROVASCULAR ACCIDENT [None]
